FAERS Safety Report 18272272 (Version 6)
Quarter: 2020Q4

REPORT INFORMATION
  Report Type: Report from Study
  Country: US (occurrence: US)
  Receive Date: 20200916
  Receipt Date: 20201016
  Transmission Date: 20210113
  Serious: No
  Sender: FDA-Public Use
  Company Number: NVSC2020US250284

PATIENT
  Age: 28 Year
  Sex: Female

DRUGS (1)
  1. GLATOPA [Suspect]
     Active Substance: GLATIRAMER ACETATE
     Indication: MULTIPLE SCLEROSIS
     Dosage: 40 MG (3 X PER WEEK)
     Route: 058
     Dates: start: 20200911

REACTIONS (8)
  - Aggression [Unknown]
  - Dizziness [Unknown]
  - Injection site rash [Unknown]
  - Injection site pain [Unknown]
  - Pain [Unknown]
  - Flushing [Unknown]
  - Hypoaesthesia [Unknown]
  - Injection site reaction [Unknown]

NARRATIVE: CASE EVENT DATE: 20200911
